FAERS Safety Report 6541995-X (Version None)
Quarter: 2010Q1

REPORT INFORMATION
  Report Type: 
  Country: None (occurrence: None)
  Receive Date: 20100119
  Receipt Date: 20100113
  Transmission Date: 20100710
  Serious: Yes (Other)
  Sender: FDA-Public Use
  Company Number: GB-ROCHE-670869

PATIENT
  Sex: Female
  Weight: 65.1 kg

DRUGS (6)
  1. AVASTIN [Suspect]
     Indication: COLORECTAL CANCER
     Route: 042
     Dates: start: 20090421
  2. FOLINIC ACID [Concomitant]
  3. 5-FU [Concomitant]
  4. IRINOTECAN HCL [Concomitant]
  5. GRANISETRON [Concomitant]
  6. DEXAMETHASONE [Concomitant]

REACTIONS (1)
  - ARTHRALGIA [None]
